FAERS Safety Report 17580028 (Version 2)
Quarter: 2021Q1

REPORT INFORMATION
  Report Type: Spontaneous
  Country: NI (occurrence: NI)
  Receive Date: 20200325
  Receipt Date: 20210212
  Transmission Date: 20210419
  Serious: Yes (Other)
  Sender: FDA-Public Use
  Company Number: NVSC2020NI080893

PATIENT
  Sex: Male

DRUGS (1)
  1. GLIVEC [Suspect]
     Active Substance: IMATINIB MESYLATE
     Indication: CHRONIC MYELOID LEUKAEMIA
     Dosage: 400 MG (1X400MG TAB)
     Route: 065

REACTIONS (6)
  - Penile pain [Unknown]
  - Blindness [Unknown]
  - Erectile dysfunction [Unknown]
  - Dysuria [Unknown]
  - Deafness [Unknown]
  - Malaise [Unknown]
